FAERS Safety Report 14278582 (Version 1)
Quarter: 2017Q4

REPORT INFORMATION
  Report Type: Spontaneous
  Country: NL (occurrence: NL)
  Receive Date: 20171211
  Receipt Date: 20171211
  Transmission Date: 20180321
  Serious: Yes (Other)
  Sender: FDA-Public Use
  Company Number: NL-OTSUKA-2016_014273

PATIENT
  Sex: Male
  Weight: 90 kg

DRUGS (3)
  1. PIPAMPERON [Concomitant]
     Active Substance: PIPAMPERONE HYDROCHLORIDE
     Indication: PRODUCT USED FOR UNKNOWN INDICATION
     Dosage: 20 MG, UNK
     Route: 065
  2. ABILIFY [Suspect]
     Active Substance: ARIPIPRAZOLE
     Indication: PSYCHOTIC DISORDER
     Dosage: 15 MG, QD
     Route: 048
     Dates: start: 199602, end: 201701
  3. ANTAGEL [Concomitant]
     Indication: PRODUCT USED FOR UNKNOWN INDICATION
     Dosage: UNK
     Route: 065

REACTIONS (14)
  - Gait inability [Unknown]
  - Glomerular filtration rate decreased [Unknown]
  - Splenic injury [Unknown]
  - Hyperhidrosis [Unknown]
  - Renal impairment [Recovered/Resolved]
  - Gamma-glutamyltransferase [Unknown]
  - Back disorder [Unknown]
  - Liver injury [Unknown]
  - Gait disturbance [Unknown]
  - Product use in unapproved indication [Unknown]
  - Fatigue [Unknown]
  - Renal injury [Unknown]
  - Withdrawal syndrome [Unknown]
  - Back pain [Recovered/Resolved]

NARRATIVE: CASE EVENT DATE: 2016
